FAERS Safety Report 6270422-5 (Version None)
Quarter: 2009Q3

REPORT INFORMATION
  Report Type: 
  Country: None (occurrence: None)
  Receive Date: 20090716
  Receipt Date: 20090705
  Transmission Date: 20100115
  Serious: Yes (Other)
  Sender: FDA-Public Use
  Company Number: PHHY2009BR27833

PATIENT
  Age: 4 Year
  Sex: Male
  Weight: 22 kg

DRUGS (3)
  1. RITALIN [Suspect]
     Indication: PSYCHOMOTOR HYPERACTIVITY
     Dosage: 10 MG, BID
     Route: 048
     Dates: start: 20090704, end: 20090704
  2. RISPERIDONE [Suspect]
     Indication: PSYCHOMOTOR HYPERACTIVITY
     Dosage: 0.3 MG, BID
     Route: 048
     Dates: start: 20090704, end: 20090705
  3. FENERGAN [Concomitant]

REACTIONS (10)
  - BRADYCARDIA [None]
  - CONVULSION [None]
  - EXTRAPYRAMIDAL DISORDER [None]
  - EYE MOVEMENT DISORDER [None]
  - ORAL DISORDER [None]
  - POSTURE ABNORMAL [None]
  - SALIVARY HYPERSECRETION [None]
  - SOMNOLENCE [None]
  - TONGUE OEDEMA [None]
  - TREMOR [None]
